FAERS Safety Report 26218416 (Version 1)
Quarter: 2025Q4

REPORT INFORMATION
  Report Type: Other
  Country: KR (occurrence: KR)
  Receive Date: 20251231
  Receipt Date: 20251231
  Transmission Date: 20260118
  Serious: Yes (Death, Life-Threatening, Other)
  Sender: PRASCO
  Company Number: KR-Prasco Laboratories-PRAS20250411

PATIENT
  Age: 37 Year
  Sex: Male

DRUGS (1)
  1. SULFAMETHOXAZOLE\TRIMETHOPRIM [Suspect]
     Active Substance: SULFAMETHOXAZOLE\TRIMETHOPRIM
     Indication: Pneumocystis test positive
     Dosage: TMP 160 MG/SMX 800 MG EVERY 12 HOURS.
     Route: 042

REACTIONS (10)
  - Acute respiratory distress syndrome [Fatal]
  - Diffuse alveolar damage [Fatal]
  - Pulmonary toxicity [Fatal]
  - Respiratory failure [Fatal]
  - Hypoxia [Unknown]
  - Traumatic haemothorax [Unknown]
  - Pleural effusion [Unknown]
  - Hypotension [Unknown]
  - Tachycardia [Unknown]
  - Dyspnoea [Unknown]
